FAERS Safety Report 7456682-3 (Version None)
Quarter: 2011Q2

REPORT INFORMATION
  Report Type: 
  Country: None (occurrence: None)
  Receive Date: 20110503
  Receipt Date: 20110426
  Transmission Date: 20111010
  Serious: Yes (Hospitalization)
  Sender: FDA-Public Use
  Company Number: US-GILEAD-2011-0038194

PATIENT
  Sex: Female

DRUGS (3)
  1. CARDIZEM [Concomitant]
  2. LETAIRIS [Suspect]
     Indication: PRODUCT USED FOR UNKNOWN INDICATION
     Route: 048
     Dates: start: 20101026
  3. PLAVIX [Concomitant]

REACTIONS (2)
  - UNEVALUABLE EVENT [None]
  - DYSPNOEA [None]
